FAERS Safety Report 6922926-7 (Version None)
Quarter: 2010Q3

REPORT INFORMATION
  Report Type: 
  Country: None (occurrence: None)
  Receive Date: 20100813
  Receipt Date: 20100803
  Transmission Date: 20110219
  Serious: Yes (Other)
  Sender: FDA-Public Use
  Company Number: PHHY2010US33562

PATIENT
  Sex: Female

DRUGS (3)
  1. VIVELLE-DOT [Suspect]
     Indication: HORMONE REPLACEMENT THERAPY
     Dosage: 0.0375 MG EVERY 5 DAYS
     Route: 062
     Dates: start: 20100210, end: 20100310
  2. VIVELLE-DOT [Suspect]
     Indication: HOT FLUSH
  3. SYNTHROID [Concomitant]

REACTIONS (5)
  - DERMATITIS [None]
  - DERMATITIS ACNEIFORM [None]
  - ERYTHEMA [None]
  - FOLLICULITIS [None]
  - RASH [None]
